FAERS Safety Report 7852370-X (Version None)
Quarter: 2011Q4

REPORT INFORMATION
  Report Type: 
  Country: None (occurrence: None)
  Receive Date: 20111026
  Receipt Date: 20111019
  Transmission Date: 20120403
  Serious: Yes (Other)
  Sender: FDA-Public Use
  Company Number: TR-ABBOTT-11P-161-0866574-00

PATIENT
  Age: 40 Year
  Sex: Female

DRUGS (6)
  1. VALPROIC ACID [Interacting]
     Indication: AFFECTIVE DISORDER
     Route: 065
     Dates: start: 20090101
  2. ZIPRASIDONE HYDROCHLORIDE [Interacting]
     Indication: SCHIZOAFFECTIVE DISORDER
     Route: 065
     Dates: start: 20090101
  3. ZIPRASIDONE HYDROCHLORIDE [Interacting]
  4. CLOZAPINE [Suspect]
     Indication: PSYCHOTIC DISORDER
  5. CLOZAPINE [Suspect]
     Indication: DYSTONIA
  6. CLOZAPINE [Suspect]

REACTIONS (5)
  - TORTICOLLIS [None]
  - DRUG INTERACTION [None]
  - SALIVARY HYPERSECRETION [None]
  - HEART RATE INCREASED [None]
  - TREMOR [None]
